FAERS Safety Report 19197675 (Version 1)
Quarter: 2021Q2

REPORT INFORMATION
  Report Type: Spontaneous
  Country: IT (occurrence: IT)
  Receive Date: 20210430
  Receipt Date: 20210430
  Transmission Date: 20210717
  Serious: Yes (Other)
  Sender: FDA-Public Use
  Company Number: IT-ROCHE-2821073

PATIENT
  Age: 78 Year
  Sex: Female
  Weight: 53 kg

DRUGS (5)
  1. ZOPRANOL [Concomitant]
     Active Substance: ZOFENOPRIL
     Route: 048
  2. DIBASE [Concomitant]
     Active Substance: CHOLECALCIFEROL
  3. CARDICOR [Concomitant]
     Active Substance: BISOPROLOL
     Route: 048
  4. TIMOGEL [Concomitant]
     Active Substance: TIMOLOL MALEATE
     Route: 047
  5. ESBRIET [Suspect]
     Active Substance: PIRFENIDONE
     Indication: IDIOPATHIC PULMONARY FIBROSIS
     Route: 048
     Dates: start: 20191220, end: 20210323

REACTIONS (4)
  - Dysgeusia [Recovering/Resolving]
  - Weight decreased [Recovering/Resolving]
  - Muscle atrophy [Recovering/Resolving]
  - Decreased appetite [Recovering/Resolving]

NARRATIVE: CASE EVENT DATE: 20210215
